FAERS Safety Report 25383517 (Version 1)
Quarter: 2025Q2

REPORT INFORMATION
  Report Type: Spontaneous
  Country: US (occurrence: US)
  Receive Date: 20250602
  Receipt Date: 20250602
  Transmission Date: 20250716
  Serious: Yes (Other)
  Sender: AUROBINDO
  Company Number: US-AUROBINDO-AUR-APL-2022-043986

PATIENT
  Age: 80 Year
  Sex: Male

DRUGS (12)
  1. FLUOROURACIL [Suspect]
     Active Substance: FLUOROURACIL
     Indication: Hepatic cancer
     Route: 065
  2. FLUOROURACIL [Suspect]
     Active Substance: FLUOROURACIL
     Route: 065
     Dates: start: 201908
  3. OXALIPLATIN [Suspect]
     Active Substance: OXALIPLATIN
     Indication: Hepatic cancer
     Route: 065
  4. IRINOTECAN HYDROCHLORIDE [Suspect]
     Active Substance: IRINOTECAN HYDROCHLORIDE
     Indication: Hepatic cancer
     Route: 065
     Dates: start: 201908
  5. LEUCOVORIN [Suspect]
     Active Substance: LEUCOVORIN\LEUCOVORIN CALCIUM
     Indication: Hepatic cancer
     Route: 065
  6. LEUCOVORIN [Suspect]
     Active Substance: LEUCOVORIN\LEUCOVORIN CALCIUM
     Route: 065
     Dates: start: 201908
  7. CETUXIMAB [Suspect]
     Active Substance: CETUXIMAB
     Indication: Hepatic cancer
     Route: 065
     Dates: start: 201903
  8. CETUXIMAB [Suspect]
     Active Substance: CETUXIMAB
     Route: 065
     Dates: start: 202007
  9. BINIMETINIB [Suspect]
     Active Substance: BINIMETINIB
     Indication: Hepatic cancer
     Route: 065
     Dates: start: 201903
  10. ENCORAFENIB [Suspect]
     Active Substance: ENCORAFENIB
     Indication: Hepatic cancer
     Route: 065
     Dates: start: 201903
  11. ENCORAFENIB [Suspect]
     Active Substance: ENCORAFENIB
     Route: 065
     Dates: start: 202007
  12. BEVACIZUMAB [Suspect]
     Active Substance: BEVACIZUMAB
     Indication: Hepatic cancer
     Route: 065
     Dates: start: 201908

REACTIONS (1)
  - Drug ineffective [Unknown]
